FAERS Safety Report 8237183-1 (Version None)
Quarter: 2012Q1

REPORT INFORMATION
  Report Type: 
  Country: None (occurrence: None)
  Receive Date: 20120327
  Receipt Date: 20120315
  Transmission Date: 20120608
  Serious: Yes (Death)
  Sender: FDA-Public Use
  Company Number: JP-BAXTER-2012BH006751

PATIENT
  Sex: Female

DRUGS (3)
  1. DIANEAL LOW CALCIUM W/ DEXTROSE 1.5% [Suspect]
     Indication: DIABETIC NEPHROPATHY
     Route: 033
  2. DIANEAL 137 W/ DEXTROSE 2.5% IN PLASTIC CONTAINER [Suspect]
     Indication: DIABETIC NEPHROPATHY
     Route: 033
  3. EXTRANEAL [Suspect]
     Indication: DIABETIC NEPHROPATHY
     Route: 033

REACTIONS (1)
  - MYOCARDIAL INFARCTION [None]
